FAERS Safety Report 21027819 (Version 1)
Quarter: 2022Q2

REPORT INFORMATION
  Report Type: Spontaneous
  Country: VN (occurrence: VN)
  Receive Date: 20220630
  Receipt Date: 20220630
  Transmission Date: 20220720
  Serious: Yes (Hospitalization)
  Sender: FDA-Public Use
  Company Number: VN-BoehringerIngelheim-2022-BI-178196

PATIENT
  Age: 69 Year
  Sex: Male

DRUGS (2)
  1. TIOTROPIUM [Suspect]
     Active Substance: TIOTROPIUM
     Indication: Chronic obstructive pulmonary disease
     Dosage: 2 PUFFS
     Route: 065
  2. SALMETETOL/FLUTICASONE [Concomitant]
     Indication: Chronic obstructive pulmonary disease
     Dosage: 25/250 MICROGRAM 2 PUFFS X 2.

REACTIONS (5)
  - Chronic obstructive pulmonary disease [Recovered/Resolved]
  - Chronic obstructive pulmonary disease [Recovered/Resolved]
  - Chronic obstructive pulmonary disease [Recovered/Resolved]
  - Chronic obstructive pulmonary disease [Recovered/Resolved]
  - Pneumonia [Recovered/Resolved]
